FAERS Safety Report 8431636-9 (Version None)
Quarter: 2012Q2

REPORT INFORMATION
  Report Type: 
  Country: None (occurrence: None)
  Receive Date: 20120613
  Receipt Date: 20110908
  Transmission Date: 20120825
  Serious: No
  Sender: FDA-Public Use
  Company Number: US-GLAXOSMITHKLINE-A0943891A

PATIENT
  Age: 25 Year
  Sex: Female

DRUGS (1)
  1. TREXIMET [Suspect]
     Indication: MIGRAINE
     Dosage: 1TAB SINGLE DOSE
     Route: 048
     Dates: start: 20110908

REACTIONS (4)
  - CHEST PAIN [None]
  - THROAT IRRITATION [None]
  - BURNING SENSATION [None]
  - NASAL DISCOMFORT [None]
